FAERS Safety Report 6213675-1 (Version None)
Quarter: 2009Q2

REPORT INFORMATION
  Report Type: 
  Country: None (occurrence: None)
  Receive Date: 20090603
  Receipt Date: 20090527
  Transmission Date: 20091009
  Serious: Yes (Hospitalization)
  Sender: FDA-Public Use
  Company Number: SE-WATSON-2009-03818

PATIENT
  Age: 59 Year
  Sex: Female

DRUGS (2)
  1. CHLOROQUINE (WATSON LABORATORIES) [Suspect]
     Indication: RHEUMATOID ARTHRITIS
     Dosage: UNK
  2. AZATHIOPRIN [Suspect]
     Indication: RHEUMATOID ARTHRITIS

REACTIONS (1)
  - PROGRESSIVE MULTIFOCAL LEUKOENCEPHALOPATHY [None]
